FAERS Safety Report 25892235 (Version 2)
Quarter: 2025Q4

REPORT INFORMATION
  Report Type: Spontaneous
  Country: US (occurrence: US)
  Receive Date: 20251007
  Receipt Date: 20251014
  Transmission Date: 20260118
  Serious: Yes (Other)
  Sender: SANDOZ
  Company Number: US-SANDOZ-SDZ2025US072345

PATIENT
  Sex: Female

DRUGS (1)
  1. RECLAST [Suspect]
     Active Substance: ZOLEDRONIC ACID
     Indication: Product used for unknown indication
     Dosage: 2 WEEKS
     Route: 065
     Dates: start: 20250925

REACTIONS (17)
  - Chest pain [Unknown]
  - Musculoskeletal stiffness [Unknown]
  - Muscular weakness [Unknown]
  - Joint instability [Unknown]
  - Limb discomfort [Unknown]
  - Migraine [Unknown]
  - Oxygen saturation decreased [Unknown]
  - Job dissatisfaction [Unknown]
  - Urinary tract infection [Unknown]
  - Loss of personal independence in daily activities [Unknown]
  - Mental status changes [Unknown]
  - Chest discomfort [Unknown]
  - Pyrexia [Unknown]
  - Influenza like illness [Unknown]
  - Fatigue [Unknown]
  - Headache [Unknown]
  - Arthralgia [Unknown]

NARRATIVE: CASE EVENT DATE: 20250925
